FAERS Safety Report 8322867 (Version 2)
Quarter: 2014Q1

REPORT INFORMATION
  Report Type: Spontaneous
  Country: US (occurrence: US)
  Receive Date: 20120105
  Receipt Date: 20140206
  Transmission Date: 20141002
  Serious: Yes (Hospitalization, Other)
  Sender: FDA-Public Use
  Company Number: US-JNJFOC-20120100643

PATIENT
  Age: 53 Year
  Sex: Female
  Weight: 92.99 kg

DRUGS (13)
  1. DURAGESIC [Suspect]
     Indication: PRODUCT USED FOR UNKNOWN INDICATION
     Route: 062
     Dates: start: 200907
  2. TORADOL [Concomitant]
     Indication: PAIN
     Dosage: EVERY 4-6 HRS
     Route: 048
     Dates: start: 2001
  3. ZANTAC [Concomitant]
     Indication: GASTRIC ULCER
     Route: 048
     Dates: start: 2001
  4. ZOFRAN [Concomitant]
     Indication: NAUSEA
     Route: 048
     Dates: start: 2001
  5. HYDROCODONE [Concomitant]
     Indication: BREAKTHROUGH PAIN
     Route: 048
  6. LYRICA [Concomitant]
     Indication: NEURALGIA
     Route: 048
     Dates: start: 2001
  7. FLUOROURACIL [Concomitant]
     Indication: SKIN CANCER
     Route: 061
  8. PREDNISONE [Concomitant]
     Indication: LIVER DISORDER
     Route: 048
     Dates: start: 1993
  9. POTASSIUM CHLORIDE [Concomitant]
     Indication: BLOOD POTASSIUM DECREASED
     Route: 048
     Dates: start: 1995
  10. FOLTX [Concomitant]
     Indication: CARDIAC DISORDER
     Route: 048
     Dates: start: 2003
  11. TRICOR [Concomitant]
     Indication: BLOOD CHOLESTEROL INCREASED
     Route: 048
     Dates: start: 2000
  12. RAMIPRIL [Concomitant]
     Indication: HYPERTENSION
     Route: 048
     Dates: start: 200512
  13. HCTZ [Concomitant]
     Indication: HYPERTENSION
     Route: 048
     Dates: start: 1990

REACTIONS (18)
  - Hip fracture [Recovered/Resolved]
  - Foot fracture [Recovered/Resolved]
  - Fall [Recovered/Resolved]
  - Diabetes mellitus [Not Recovered/Not Resolved]
  - Adverse event [Recovered/Resolved]
  - Pharyngeal oedema [Recovered/Resolved]
  - Blood cholesterol increased [Not Recovered/Not Resolved]
  - Squamous cell carcinoma [Not Recovered/Not Resolved]
  - Osteoarthritis [Not Recovered/Not Resolved]
  - Foot fracture [Not Recovered/Not Resolved]
  - Wrong technique in drug usage process [Not Recovered/Not Resolved]
  - Wrong technique in drug usage process [Recovered/Resolved]
  - Wrong technique in drug usage process [Not Recovered/Not Resolved]
  - Drug ineffective [Recovered/Resolved]
  - Dehydroepiandrosterone decreased [Not Recovered/Not Resolved]
  - Headache [Not Recovered/Not Resolved]
  - Vitamin D decreased [Not Recovered/Not Resolved]
  - Product adhesion issue [Unknown]
